FAERS Safety Report 8882252 (Version 1)
Quarter: 2012Q4

REPORT INFORMATION
  Report Type: 
  Country: CA (occurrence: CA)
  Receive Date: 20121102
  Receipt Date: 20121102
  Transmission Date: 20130627
  Serious: Yes (Hospitalization)
  Sender: FDA-Public Use
  Company Number: PHMT2007CA01207

PATIENT
  Sex: Female

DRUGS (3)
  1. SANDOSTATIN LAR [Suspect]
     Indication: NEUROENDOCRINE TUMOUR
     Dosage: 20 mg, Once in 4 weeks
     Route: 030
     Dates: start: 20070301
  2. SANDOSTATIN [Suspect]
     Route: 058
  3. CHEMOTHERAPEUTICS NOS [Concomitant]
     Dates: start: 20070516, end: 20070518

REACTIONS (8)
  - Pyrexia [Unknown]
  - Malaise [Unknown]
  - Asthenia [Unknown]
  - Vomiting [Unknown]
  - Constipation [Unknown]
  - Bowel movement irregularity [Unknown]
  - Fatigue [Unknown]
  - Nasopharyngitis [Unknown]
